FAERS Safety Report 9494426 (Version 3)
Quarter: 2013Q4

REPORT INFORMATION
  Report Type: Spontaneous
  Country: BR (occurrence: BR)
  Receive Date: 20130903
  Receipt Date: 20131106
  Transmission Date: 20140711
  Serious: Yes (Hospitalization, Other)
  Sender: FDA-Public Use
  Company Number: PHHY2013BR093630

PATIENT
  Age: 74 Year
  Sex: Female
  Weight: 59 kg

DRUGS (14)
  1. APRESOLIN [Suspect]
     Indication: HYPERTENSION
     Dosage: 2 DF (25 MG), DAILY
     Route: 048
  2. APRESOLIN [Suspect]
     Dosage: 1 DF (50 MG), DAILY
     Route: 048
  3. APRESOLIN [Suspect]
     Dosage: 25 MG, UNK
     Route: 048
     Dates: start: 20130819
  4. CAPTOPRIL [Suspect]
     Indication: HYPERTENSION
     Dosage: 1 DF (12.5 MG), DAILY
     Route: 048
  5. ATENOLOL [Suspect]
     Indication: HYPERTENSION
     Dosage: 2 DF (25 MG), DAILY
     Route: 048
  6. SIMVASTATIN [Suspect]
     Indication: BLOOD CHOLESTEROL ABNORMAL
     Dosage: 1 DF, DAILY
     Route: 048
  7. FLUOXETINE [Concomitant]
     Indication: DEPRESSION
     Dosage: 2 DF (25 MG), DAILY
     Route: 048
  8. FLUOXETINE [Concomitant]
     Indication: INSOMNIA
  9. ALPRAZOLAM [Concomitant]
     Indication: DEPRESSION
     Dosage: 1.5 DF (1 MG), DAILY
     Route: 048
  10. ALPRAZOLAM [Concomitant]
     Indication: INSOMNIA
  11. EZETIMIBE (EZETROL) [Concomitant]
     Indication: BLOOD CHOLESTEROL ABNORMAL
     Dosage: 1 DF (10 MG), DAILY
     Route: 048
  12. TANDRILAX [Concomitant]
     Indication: SPINAL DISORDER
     Dosage: 1 DF, DAILY
     Route: 048
  13. DIPROSPAN [Concomitant]
     Indication: SPINAL DISORDER
     Dosage: UNK UKN, UNK
     Route: 030
  14. DECADRON                                /CAN/ [Concomitant]
     Indication: SPINAL DISORDER
     Dosage: UNK UKN, UNK
     Route: 030

REACTIONS (19)
  - Retching [Recovered/Resolved]
  - Asthenia [Not Recovered/Not Resolved]
  - Ocular hyperaemia [Not Recovered/Not Resolved]
  - Erythema [Not Recovered/Not Resolved]
  - Nervous system disorder [Not Recovered/Not Resolved]
  - Hyperhidrosis [Recovered/Resolved]
  - Pigmentation disorder [Not Recovered/Not Resolved]
  - Local swelling [Not Recovered/Not Resolved]
  - Palpitations [Not Recovered/Not Resolved]
  - Tremor [Not Recovered/Not Resolved]
  - Headache [Recovered/Resolved]
  - Myalgia [Not Recovered/Not Resolved]
  - Fall [Not Recovered/Not Resolved]
  - Limb injury [Not Recovered/Not Resolved]
  - Cough [Not Recovered/Not Resolved]
  - Throat irritation [Recovered/Resolved]
  - Chest discomfort [Recovered/Resolved]
  - Pain [Unknown]
  - Pain in extremity [Not Recovered/Not Resolved]
